FAERS Safety Report 14651370 (Version 1)
Quarter: 2018Q1

REPORT INFORMATION
  Report Type: Spontaneous
  Country: US (occurrence: US)
  Receive Date: 20180316
  Receipt Date: 20180316
  Transmission Date: 20180509
  Serious: Yes (Hospitalization)
  Sender: FDA-Public Use
  Company Number: None

PATIENT
  Age: 17 Year
  Sex: Male
  Weight: 108 kg

DRUGS (6)
  1. ABILIFY [Concomitant]
     Active Substance: ARIPIPRAZOLE
  2. INTUNIV [Concomitant]
     Active Substance: GUANFACINE HYDROCHLORIDE
  3. MONTELUKAST 10MG TAB MAC [Suspect]
     Active Substance: MONTELUKAST SODIUM
     Indication: ASTHMA
     Dosage: ?          QUANTITY:1 TABLET(S);?
     Route: 048
     Dates: start: 20180127, end: 20180309
  4. DEPAKOTE [Concomitant]
     Active Substance: DIVALPROEX SODIUM
  5. FIBER GUMMIES [Concomitant]
  6. LEXAPRO [Concomitant]
     Active Substance: ESCITALOPRAM OXALATE

REACTIONS (5)
  - Suicide attempt [None]
  - Irritability [None]
  - Depression [None]
  - Aggression [None]
  - Intentional self-injury [None]

NARRATIVE: CASE EVENT DATE: 20180308
